FAERS Safety Report 23160142 (Version 2)
Quarter: 2023Q4

REPORT INFORMATION
  Report Type: Other
  Country: US (occurrence: None)
  Receive Date: 20231108
  Receipt Date: 20231202
  Transmission Date: 20240110
  Serious: No
  Sender: FDA-Public Use
  Company Number: US-ROCHE-3451769

PATIENT
  Age: 42 Year
  Sex: Male
  Weight: 111.23 kg

DRUGS (23)
  1. OCREVUS [Suspect]
     Active Substance: OCRELIZUMAB
     Indication: Relapsing-remitting multiple sclerosis
     Route: 042
     Dates: start: 201909
  2. BENADRYL ALLERGY [Concomitant]
     Active Substance: DIPHENHYDRAMINE HYDROCHLORIDE
  3. ALBUTEROL SULFATE [Concomitant]
     Active Substance: ALBUTEROL SULFATE
  4. AMPYRA [Concomitant]
     Active Substance: DALFAMPRIDINE
  5. BIOTIN [Concomitant]
     Active Substance: BIOTIN
  6. CICLOPIROX [Concomitant]
     Active Substance: CICLOPIROX\TOCOPHEROL
  7. DICLOFENAC SODIUM [Concomitant]
     Active Substance: DICLOFENAC\DICLOFENAC SODIUM
  8. EPINEPHRINE [Concomitant]
     Active Substance: EPINEPHRINE
  9. FUROSEMIDE [Concomitant]
     Active Substance: FUROSEMIDE
  10. IBUPROFEN [Concomitant]
     Active Substance: IBUPROFEN
  11. OMEPRAZOLE [Concomitant]
     Active Substance: OMEPRAZOLE
  12. POTASSIUM CHLORIDE [Concomitant]
     Active Substance: POTASSIUM CHLORIDE
  13. PRISTIQ EXTENDED-RELEASE [Concomitant]
     Active Substance: DESVENLAFAXINE SUCCINATE
  14. PROAIR HFA [Concomitant]
     Active Substance: ALBUTEROL SULFATE
  15. ROSUVASTATIN [Concomitant]
     Active Substance: ROSUVASTATIN
  16. TIZANIDINE [Concomitant]
     Active Substance: TIZANIDINE
  17. TOVIAZ [Concomitant]
     Active Substance: FESOTERODINE FUMARATE
  18. TRAVATAN [Concomitant]
     Active Substance: TRAVOPROST
  19. TRELEGY ELLIPTA [Concomitant]
     Active Substance: FLUTICASONE FUROATE\UMECLIDINIUM BROMIDE\VILANTEROL TRIFENATATE
  20. TRIAMCINOLONE ACETONIDE [Concomitant]
     Active Substance: TRIAMCINOLONE ACETONIDE
  21. VITAMIN D3 [Concomitant]
     Active Substance: CHOLECALCIFEROL
  22. XHANCE [Concomitant]
     Active Substance: FLUTICASONE PROPIONATE
  23. ZYRTEC [Concomitant]
     Active Substance: CETIRIZINE HYDROCHLORIDE

REACTIONS (12)
  - Multiple sclerosis [Unknown]
  - JC polyomavirus test positive [Unknown]
  - Pyrexia [Unknown]
  - Rash [Unknown]
  - Nausea [Unknown]
  - Urticaria [Unknown]
  - Back pain [Unknown]
  - Muscular weakness [Unknown]
  - Hypoaesthesia [Unknown]
  - Paraesthesia [Unknown]
  - Confusional state [Unknown]
  - Urinary retention [Unknown]

NARRATIVE: CASE EVENT DATE: 20231101
